FAERS Safety Report 19437415 (Version 1)
Quarter: 2021Q2

REPORT INFORMATION
  Report Type: Spontaneous
  Country: US (occurrence: US)
  Receive Date: 20210619
  Receipt Date: 20210619
  Transmission Date: 20210717
  Serious: Yes (Hospitalization, Other)
  Sender: FDA-Public Use
  Company Number: US-AUROBINDO-AUR-APL-2021-025097

PATIENT
  Age: 15 Year
  Sex: Female

DRUGS (2)
  1. CLONIDINE TABLET [Suspect]
     Active Substance: CLONIDINE
     Indication: PRODUCT USED FOR UNKNOWN INDICATION
     Dosage: 100 MICROGRAM (247 TABLETS)
     Route: 065
  2. CHARCOAL ACTIVATED [Concomitant]
     Active Substance: ACTIVATED CHARCOAL
     Indication: PRODUCT USED FOR UNKNOWN INDICATION
     Dosage: UNK
     Route: 065

REACTIONS (7)
  - Seizure [Unknown]
  - Toxicity to various agents [Unknown]
  - Intentional overdose [Unknown]
  - Hypertension [Unknown]
  - Bradycardia [Unknown]
  - Posterior reversible encephalopathy syndrome [Unknown]
  - Mental impairment [Unknown]
